FAERS Safety Report 18768477 (Version 1)
Quarter: 2021Q1

REPORT INFORMATION
  Report Type: Spontaneous
  Country: US (occurrence: US)
  Receive Date: 20210121
  Receipt Date: 20210121
  Transmission Date: 20210419
  Serious: Yes (Hospitalization)
  Sender: FDA-Public Use
  Company Number: None

PATIENT
  Sex: Female

DRUGS (9)
  1. IMATINIB MES [Suspect]
     Active Substance: IMATINIB MESYLATE
     Indication: GASTRIC CANCER
     Route: 048
     Dates: start: 20190524
  2. BUIT/APAP/CAF, [Concomitant]
  3. LATANOPROST. [Concomitant]
     Active Substance: LATANOPROST
  4. XARELTO [Concomitant]
     Active Substance: RIVAROXABAN
  5. PREDNISONE, [Concomitant]
  6. POT CHLORIDE [Concomitant]
     Active Substance: POTASSIUM CHLORIDE
  7. ESCITALOPRAM [Concomitant]
     Active Substance: ESCITALOPRAM OXALATE
  8. AMODARONE [Concomitant]
  9. BUDESONIDE. [Concomitant]
     Active Substance: BUDESONIDE

REACTIONS (2)
  - Pneumonia [None]
  - Therapy interrupted [None]
